FAERS Safety Report 7424473-5 (Version None)
Quarter: 2011Q2

REPORT INFORMATION
  Report Type: 
  Country: None (occurrence: None)
  Receive Date: 20110419
  Receipt Date: 20110415
  Transmission Date: 20111010
  Serious: Yes (Hospitalization, Other)
  Sender: FDA-Public Use
  Company Number: JP-GENZYME-THYM-1001968

PATIENT
  Age: 57 Year
  Sex: Female
  Weight: 48 kg

DRUGS (13)
  1. CHLORPHENIRAMINE MALEATE [Concomitant]
     Indication: PREMEDICATION
     Dosage: UNK
     Dates: start: 20091012, end: 20091014
  2. SULFAMETHOXAZOLE W [Concomitant]
     Indication: ANTIFUNGAL PROPHYLAXIS
     Dosage: UNK
     Dates: start: 20090925, end: 20091008
  3. TACROLIMUS [Concomitant]
     Indication: PROPHYLAXIS AGAINST GRAFT VERSUS HOST DISEASE
     Dosage: UNK
     Dates: start: 20091015
  4. METHOTREXATE [Concomitant]
     Indication: PROPHYLAXIS AGAINST GRAFT VERSUS HOST DISEASE
     Dosage: UNK
     Dates: start: 20091017, end: 20091022
  5. FLUCONAZOLE [Concomitant]
     Indication: ANTIFUNGAL PROPHYLAXIS
     Dosage: UNK
     Dates: start: 20091002, end: 20091204
  6. CYTARABINE [Concomitant]
     Indication: BONE MARROW CONDITIONING REGIMEN
     Dosage: 2400 MG/M2, UNK
     Route: 065
  7. VORICONAZOLE [Concomitant]
     Indication: ANTIFUNGAL PROPHYLAXIS
     Dosage: UNK
     Dates: start: 20091205
  8. GRANULOCYTE COLONY STIMULATING FACTOR [Concomitant]
     Indication: BONE MARROW CONDITIONING REGIMEN
     Route: 065
  9. TOTAL BODY IRRADIATION [Concomitant]
     Indication: BONE MARROW CONDITIONING REGIMEN
     Dosage: UNK
     Dates: start: 20091008, end: 20091010
  10. ACETAMINOPHEN [Concomitant]
     Indication: PREMEDICATION
     Dosage: UNK
     Dates: start: 20091012, end: 20091014
  11. THYMOGLOBULIN [Suspect]
     Indication: BONE MARROW CONDITIONING REGIMEN
     Dosage: 60 MG, QD
     Route: 042
     Dates: start: 20091012, end: 20091014
  12. METHYLPREDNISOLONE SODIUM SUCCINATE [Concomitant]
     Indication: PREMEDICATION
     Dosage: UNK
     Dates: start: 20091012, end: 20091014
  13. ACYCLOVIR [Concomitant]
     Indication: ANTIVIRAL PROPHYLAXIS
     Dosage: UNK
     Dates: start: 20091013, end: 20091030

REACTIONS (4)
  - CYTOMEGALOVIRUS CHORIORETINITIS [None]
  - GRAFT VERSUS HOST DISEASE IN LUNG [None]
  - CYTOMEGALOVIRUS GASTROENTERITIS [None]
  - FEBRILE NEUTROPENIA [None]
